FAERS Safety Report 8396803-1 (Version None)
Quarter: 2012Q1

REPORT INFORMATION
  Report Type: 
  Country: None (occurrence: None)
  Receive Date: 20120323
  Receipt Date: 20110811
  Transmission Date: 20120608
  Serious: Yes (Hospitalization)
  Sender: FDA-Public Use
  Company Number: 163-21880-11042284

PATIENT
  Age: 64 Year
  Sex: Female

DRUGS (3)
  1. REVLIMID [Suspect]
     Indication: MULTIPLE MYELOMA
     Dosage: 15 MG, 1 IN 1 D, PO 25 MG, 1 IN 1 D, PO 15 MG, 1 IN 1 D, PO
     Route: 048
     Dates: start: 20110301
  2. REVLIMID [Suspect]
     Indication: MULTIPLE MYELOMA
     Dosage: 15 MG, 1 IN 1 D, PO 25 MG, 1 IN 1 D, PO 15 MG, 1 IN 1 D, PO
     Route: 048
     Dates: start: 20110321, end: 20110403
  3. REVLIMID [Suspect]
     Indication: MULTIPLE MYELOMA
     Dosage: 15 MG, 1 IN 1 D, PO 25 MG, 1 IN 1 D, PO 15 MG, 1 IN 1 D, PO
     Route: 048
     Dates: start: 20110401

REACTIONS (2)
  - MYELOMA RECURRENCE [None]
  - MULTIPLE MYELOMA [None]
